FAERS Safety Report 21517559 (Version 2)
Quarter: 2022Q4

REPORT INFORMATION
  Report Type: Report from Study
  Country: US (occurrence: US)
  Receive Date: 20221028
  Receipt Date: 20221125
  Transmission Date: 20230113
  Serious: Yes (Other)
  Sender: FDA-Public Use
  Company Number: US-ABBVIE-4177193

PATIENT
  Sex: Female

DRUGS (2)
  1. IMBRUVICA [Suspect]
     Active Substance: IBRUTINIB
     Indication: Product used for unknown indication
     Route: 048
  2. IMBRUVICA [Suspect]
     Active Substance: IBRUTINIB
     Indication: Product used for unknown indication
     Route: 048

REACTIONS (10)
  - Skin cancer [Unknown]
  - Rash [Recovered/Resolved]
  - Onychoclasis [Unknown]
  - Rosacea [Unknown]
  - Arthralgia [Unknown]
  - Hypertension [Unknown]
  - Blood pressure fluctuation [Unknown]
  - Skin disorder [Unknown]
  - Skin atrophy [Unknown]
  - Skin laceration [Unknown]
